FAERS Safety Report 6664734-0 (Version None)
Quarter: 2010Q1

REPORT INFORMATION
  Report Type: 
  Country: None (occurrence: None)
  Receive Date: 20100330
  Receipt Date: 20091109
  Transmission Date: 20100710
  Serious: Yes (Hospitalization)
  Sender: FDA-Public Use
  Company Number: 6055818

PATIENT
  Age: 45 Year
  Sex: Female

DRUGS (6)
  1. LEVOTHYROXINE SODIUM [Suspect]
     Indication: BASEDOW'S DISEASE
     Dosage: ORAL
     Route: 048
     Dates: start: 19920101
  2. PROPOFAN (PARACETAMOL, DEXTROPROPOXYPHONE, CAFEINE) [Suspect]
  3. NOCERTONE (OXETORONE FUMARATE) [Concomitant]
  4. PROPRANOLOL [Concomitant]
  5. PRAVASTATIN [Concomitant]
  6. ISOBAR (METHYLCHLOTHIAZIDE, TRIAMTERENE) [Concomitant]

REACTIONS (11)
  - ASTHENIA [None]
  - DEHYDRATION [None]
  - DYSPNOEA EXERTIONAL [None]
  - FEELING DRUNK [None]
  - HEADACHE [None]
  - HYPERTENSION [None]
  - MALAISE [None]
  - OVERDOSE [None]
  - SELF-MEDICATION [None]
  - TREMOR [None]
  - VERTIGO [None]
